FAERS Safety Report 7391429-0 (Version None)
Quarter: 2011Q2

REPORT INFORMATION
  Report Type: 
  Country: None (occurrence: None)
  Receive Date: 20110404
  Receipt Date: 20110328
  Transmission Date: 20111010
  Serious: Yes (Death)
  Sender: FDA-Public Use
  Company Number: TZ-SANOFI-AVENTIS-2011SA011320

PATIENT
  Age: 38 Year
  Sex: Male
  Weight: 45 kg

DRUGS (8)
  1. CEFTRIAXONE [Concomitant]
  2. METRONIDAZOLE [Concomitant]
  3. ISONIAZID [Suspect]
     Indication: PULMONARY TUBERCULOSIS
     Dates: start: 20110121
  4. HYDROCORTISONE [Concomitant]
  5. RIFAMPICIN [Suspect]
     Indication: PULMONARY TUBERCULOSIS
     Dates: start: 20110121
  6. ETHAMBUTOL HYDROCHLORIDE [Suspect]
     Indication: PULMONARY TUBERCULOSIS
     Dates: start: 20110121
  7. PYRAZINAMIDE [Suspect]
     Indication: PULMONARY TUBERCULOSIS
     Dates: start: 20110121
  8. MOXIFLOXACIN [Suspect]
     Indication: PULMONARY TUBERCULOSIS
     Dates: start: 20110121

REACTIONS (2)
  - DYSPNOEA [None]
  - NAUSEA [None]
